FAERS Safety Report 5006060-1 (Version None)
Quarter: 2006Q1

REPORT INFORMATION
  Report Type: 
  Country: None (occurrence: None)
  Receive Date: 20060328
  Receipt Date: 20060227
  Transmission Date: 20060701
  Serious: Yes (Hospitalization)
  Sender: FDA-Public Use
  Company Number: 06P-163-0326130-00

PATIENT
  Age: 78 Year
  Sex: Female
  Weight: 68.0396 kg

DRUGS (8)
  1. HUMIRA [Suspect]
     Indication: RHEUMATOID ARTHRITIS
     Dosage: 40 MG, 1 IN 2 WK, SUBCUTANEOUS
     Route: 058
     Dates: start: 20050101, end: 20060101
  2. INSULIN GLARGINE [Concomitant]
  3. NOVOLOG [Concomitant]
  4. AMLODIPINE BESYLATE [Concomitant]
  5. GLIPIZIDE [Concomitant]
  6. GEMFIBROZIL [Concomitant]
  7. LANSOPRAZOLE [Concomitant]
  8. FUROSEMIDE [Concomitant]

REACTIONS (3)
  - NASOPHARYNGITIS [None]
  - URINARY TRACT INFECTION [None]
  - VOMITING [None]
